FAERS Safety Report 9532077 (Version 1)
Quarter: 2013Q3

REPORT INFORMATION
  Report Type: Spontaneous
  Country: FR (occurrence: FR)
  Receive Date: 20130918
  Receipt Date: 20130918
  Transmission Date: 20140515
  Serious: Yes (Death)
  Sender: FDA-Public Use
  Company Number: FR-BAXTER-2013BAX035475

PATIENT
  Age: 51 Year
  Sex: Female

DRUGS (2)
  1. ENDOXAN 2000 MG, LYOPHILISAT POUR SOLUTION INJECTABLE [Suspect]
     Indication: BONE MARROW CONDITIONING REGIMEN
     Route: 065
     Dates: start: 20120507, end: 20120508
  2. SANDIMMUN [Suspect]
     Indication: BONE MARROW CONDITIONING REGIMEN
     Route: 042
     Dates: start: 20120507, end: 20120605

REACTIONS (4)
  - Myocarditis [Fatal]
  - Ejection fraction decreased [Fatal]
  - Renal failure [Unknown]
  - Acute pulmonary oedema [Fatal]
